FAERS Safety Report 5828542-2 (Version None)
Quarter: 2008Q3

REPORT INFORMATION
  Report Type: 
  Country: None (occurrence: None)
  Receive Date: 20080731
  Receipt Date: 20080723
  Transmission Date: 20090109
  Serious: Yes (Other)
  Sender: FDA-Public Use
  Company Number: JP-ASTRAZENECA-2008AP05673

PATIENT
  Age: 58 Year
  Sex: Female

DRUGS (1)
  1. NOLVADEX [Suspect]
     Indication: BREAST CANCER
     Route: 048

REACTIONS (1)
  - INTRACRANIAL VENOUS SINUS THROMBOSIS [None]
